FAERS Safety Report 15456211 (Version 1)
Quarter: 2018Q4

REPORT INFORMATION
  Report Type: Report from Study
  Country: DE (occurrence: DE)
  Receive Date: 20181002
  Receipt Date: 20181002
  Transmission Date: 20190204
  Serious: Yes (Life-Threatening, Hospitalization)
  Sender: FDA-Public Use
  Company Number: DE-TEVA-2018-DE-960530

PATIENT
  Age: 74 Year
  Sex: Male
  Weight: 74 kg

DRUGS (20)
  1. IRINOTECAN [Suspect]
     Active Substance: IRINOTECAN
     Indication: COLORECTAL CANCER METASTATIC
     Dosage: 342 MG
     Route: 065
     Dates: start: 20180430
  2. FLUOROURACIL. [Suspect]
     Active Substance: FLUOROURACIL
     Dosage: 1520 MG
     Route: 040
     Dates: start: 20180430
  3. PANITUMUMAB [Suspect]
     Active Substance: PANITUMUMAB
     Indication: COLORECTAL CANCER METASTATIC
     Dosage: 444 MG
     Route: 042
     Dates: start: 20180516
  4. FENTANYL. [Concomitant]
     Active Substance: FENTANYL
     Dates: start: 20160710
  5. FLUOROURACIL. [Suspect]
     Active Substance: FLUOROURACIL
     Dosage: 752 MG
     Route: 040
     Dates: start: 20180516
  6. IRINOTECAN [Suspect]
     Active Substance: IRINOTECAN
     Dosage: 338 MG
     Route: 065
     Dates: start: 20180516
  7. PANITUMUMAB [Suspect]
     Active Substance: PANITUMUMAB
     Dosage: 432 MG
     Route: 042
     Dates: start: 20180615
  8. SPIRIVA [Concomitant]
     Active Substance: TIOTROPIUM BROMIDE MONOHYDRATE
     Dates: start: 20150101
  9. FLUOROURACIL. [Suspect]
     Active Substance: FLUOROURACIL
     Dosage: 4464 MG
     Route: 042
     Dates: start: 20180615
  10. FOLINIC ACID [Suspect]
     Active Substance: LEUCOVORIN
     Indication: COLORECTAL CANCER METASTATIC
     Dosage: 744 MG
     Route: 065
     Dates: start: 20180615
  11. IRINOTECAN [Suspect]
     Active Substance: IRINOTECAN
     Dosage: 334 MG
     Route: 065
     Dates: start: 20180615
  12. MINOCYCLIN-RATIOPHARM [Concomitant]
     Dates: start: 20180516
  13. PREDNISOLONE. [Concomitant]
     Active Substance: PREDNISOLONE
     Dates: start: 20170701, end: 20180906
  14. FLUOROURACIL. [Suspect]
     Active Substance: FLUOROURACIL
     Indication: COLORECTAL CANCER METASTATIC
     Dosage: 4512 MG
     Route: 042
     Dates: start: 20180516
  15. FLUOROURACIL. [Suspect]
     Active Substance: FLUOROURACIL
     Dosage: 2280 MG
     Route: 042
     Dates: start: 20180430
  16. FOLINIC ACID [Suspect]
     Active Substance: LEUCOVORIN
     Dosage: 760 MG
     Route: 065
     Dates: start: 20180430
  17. FOLINIC ACID [Suspect]
     Active Substance: LEUCOVORIN
     Dosage: 752 MG
     Route: 065
     Dates: start: 20180516
  18. AMOXICILLIN. [Concomitant]
     Active Substance: AMOXICILLIN
     Dates: start: 20180613, end: 20180620
  19. FLUOROURACIL. [Suspect]
     Active Substance: FLUOROURACIL
     Dosage: 744 MG
     Route: 040
     Dates: start: 20180615
  20. BISOPROLOL-RATIOPHARM [Concomitant]
     Dates: start: 20180517

REACTIONS (1)
  - Colitis [Recovered/Resolved]

NARRATIVE: CASE EVENT DATE: 20180902
